FAERS Safety Report 6598821-2 (Version None)
Quarter: 2010Q1

REPORT INFORMATION
  Report Type: 
  Country: None (occurrence: None)
  Receive Date: 20100224
  Receipt Date: 20100215
  Transmission Date: 20100710
  Serious: Yes (Other)
  Sender: FDA-Public Use
  Company Number: JP-NAPPMUNDI-MAG-2010-0001207

PATIENT
  Age: 74 Year
  Sex: Male

DRUGS (3)
  1. OXYCODONE HCL PR TABLET [Suspect]
     Indication: CANCER PAIN
     Route: 048
  2. OXYCODONE HCL [Suspect]
     Indication: CANCER PAIN
     Route: 048
  3. NOVAMIN                            /00013301/ [Concomitant]
     Indication: DRUG USE FOR UNKNOWN INDICATION
     Route: 048

REACTIONS (1)
  - PNEUMONITIS [None]
